FAERS Safety Report 16822721 (Version 1)
Quarter: 2019Q3

REPORT INFORMATION
  Report Type: Spontaneous
  Country: US (occurrence: US)
  Receive Date: 20190918
  Receipt Date: 20190918
  Transmission Date: 20191005
  Serious: Yes (Death, Other)
  Sender: FDA-Public Use
  Company Number: US-JNJFOC-20190911366

PATIENT
  Sex: Male

DRUGS (1)
  1. LEVAQUIN [Suspect]
     Active Substance: LEVOFLOXACIN
     Indication: PNEUMONIA
     Route: 042
     Dates: start: 201412, end: 201412

REACTIONS (8)
  - Transplant failure [Unknown]
  - Mental impairment [Unknown]
  - Confusional state [Unknown]
  - Sepsis [Unknown]
  - Nerve injury [Unknown]
  - Cardiac failure [Fatal]
  - Neuropathy peripheral [Unknown]
  - Wound [Unknown]

NARRATIVE: CASE EVENT DATE: 201412
